FAERS Safety Report 22538852 (Version 2)
Quarter: 2023Q2

REPORT INFORMATION
  Report Type: Other
  Country: CA (occurrence: CA)
  Receive Date: 20230609
  Receipt Date: 20230616
  Transmission Date: 20230722
  Serious: Yes (Death)
  Sender: FDA-Public Use
  Company Number: CA-CELLTRION INC.-2023CA011657

PATIENT

DRUGS (4)
  1. RITUXIMAB [Suspect]
     Active Substance: RITUXIMAB
     Indication: Glycogen storage disease type II
     Route: 065
  2. ALGLUCOSIDASE ALFA [Concomitant]
     Active Substance: ALGLUCOSIDASE ALFA
     Indication: Glycogen storage disease type II
     Dosage: 20 MG/KG, 1 EVERY 2 WEEKS
  3. IMMUNE GLOBULIN NOS [Concomitant]
     Active Substance: IMMUNE GLOBULIN NOS
     Indication: Glycogen storage disease type II
     Dosage: 1 EVERY 1 MONTHS
     Route: 040
  4. METHOTREXATE [Concomitant]
     Active Substance: METHOTREXATE
     Indication: Glycogen storage disease type II

REACTIONS (3)
  - Glycogen storage disease type II [Fatal]
  - Off label use [Fatal]
  - Intentional product use issue [Unknown]
